FAERS Safety Report 25145581 (Version 2)
Quarter: 2025Q2

REPORT INFORMATION
  Report Type: Spontaneous
  Country: US (occurrence: US)
  Receive Date: 20250401
  Receipt Date: 20250409
  Transmission Date: 20250717
  Serious: No
  Sender: SANOFI AVENTIS
  Company Number: US-SA-2025SA092709

PATIENT
  Age: 86 Year
  Sex: Female

DRUGS (1)
  1. KEVZARA [Suspect]
     Active Substance: SARILUMAB
     Indication: Rheumatoid arthritis
     Dosage: 200 MG, QOW
     Route: 058
     Dates: start: 20250314

REACTIONS (3)
  - Dyspnoea [Recovering/Resolving]
  - Cold sweat [Unknown]
  - Chest pain [Unknown]

NARRATIVE: CASE EVENT DATE: 20250314
